FAERS Safety Report 7407606-6 (Version None)
Quarter: 2011Q2

REPORT INFORMATION
  Report Type: 
  Country: None (occurrence: None)
  Receive Date: 20110404
  Receipt Date: 20110318
  Transmission Date: 20111010
  Serious: Yes (Other)
  Sender: FDA-Public Use
  Company Number: 029638

PATIENT
  Age: 74 Year
  Sex: Male
  Weight: 77.3 kg

DRUGS (2)
  1. CIMZIA [Suspect]
     Indication: RHEUMATOID ARTHRITIS
     Dosage: 200 MG 1X/2 WEEKS SUBCUTANEOUS
     Route: 058
     Dates: start: 20100802, end: 20101006
  2. PREDNISOLONE [Concomitant]

REACTIONS (2)
  - SKIN REACTION [None]
  - THROMBOCYTOPENIA [None]
